FAERS Safety Report 10189967 (Version 1)
Quarter: 2014Q2

REPORT INFORMATION
  Report Type: Spontaneous
  Country: FI (occurrence: FI)
  Receive Date: 20140522
  Receipt Date: 20140522
  Transmission Date: 20141212
  Serious: Yes (Hospitalization, Other)
  Sender: FDA-Public Use
  Company Number: FI-AMGEN-FINSP2014037458

PATIENT
  Age: 53 Year
  Sex: Female

DRUGS (11)
  1. ENBREL [Suspect]
     Indication: PRODUCT USED FOR UNKNOWN INDICATION
     Dosage: 50 MG, WEEKLY
     Route: 058
     Dates: start: 201403
  2. TREXAN                             /00113801/ [Suspect]
     Indication: SYSTEMIC LUPUS ERYTHEMATOSUS
     Dosage: 15MG/10 MG ALTERNATE WEEKS
     Route: 048
     Dates: start: 2003, end: 20140430
  3. LEPONEX [Concomitant]
     Dosage: 150 MG, 1X/DAY
     Route: 048
  4. OXIKLORIN [Concomitant]
     Dosage: 300 MG, UNK
     Route: 048
  5. PRADAXA [Concomitant]
     Dosage: 110 MG, UNK
     Route: 048
  6. LITO [Concomitant]
     Dosage: 300 MG, UNK
     Route: 048
  7. MEDROL                             /00049601/ [Concomitant]
     Dosage: 4 MG, UNK
     Route: 048
  8. DIOVAN [Concomitant]
     Dosage: 80 MG, UNK
     Route: 048
  9. CIPRALEX                           /01588501/ [Concomitant]
     Dosage: 15 MG, UNK
     Route: 048
  10. CRESTOR [Concomitant]
     Dosage: 10 MG, UNK
     Route: 048
  11. TRAMAL [Concomitant]
     Dosage: 100 MG, UNK
     Route: 048

REACTIONS (4)
  - Hypoxia [Not Recovered/Not Resolved]
  - Lung disorder [Not Recovered/Not Resolved]
  - Interstitial lung disease [Not Recovered/Not Resolved]
  - Influenza [Unknown]
